FAERS Safety Report 7560721-9 (Version None)
Quarter: 2011Q2

REPORT INFORMATION
  Report Type: 
  Country: None (occurrence: None)
  Receive Date: 20110621
  Receipt Date: 20110606
  Transmission Date: 20111010
  Serious: Yes (Other)
  Sender: FDA-Public Use
  Company Number: TR-WATSON-2011-08408

PATIENT
  Age: 43 Year
  Sex: Male

DRUGS (2)
  1. HYDROXYZINE PAMOATE [Suspect]
     Indication: PRODUCT USED FOR UNKNOWN INDICATION
     Dosage: UNK
  2. CETIRIZINE HCL [Suspect]
     Indication: RHINITIS ALLERGIC
     Dosage: UNK
     Route: 048

REACTIONS (2)
  - DRUG ERUPTION [None]
  - CONDITION AGGRAVATED [None]
